FAERS Safety Report 7919571-3 (Version None)
Quarter: 2011Q4

REPORT INFORMATION
  Report Type: 
  Country: None (occurrence: None)
  Receive Date: 20111117
  Receipt Date: 20111111
  Transmission Date: 20120403
  Serious: Yes (Hospitalization)
  Sender: FDA-Public Use
  Company Number: US-CELGENEUS-163-21880-11091251

PATIENT
  Sex: Female
  Weight: 47.216 kg

DRUGS (5)
  1. REVLIMID [Suspect]
     Indication: MULTIPLE MYELOMA
     Dosage: 25 MILLIGRAM
     Route: 048
     Dates: start: 20110810
  2. SEROQUEL [Concomitant]
     Dosage: 400 MILLIGRAM
     Route: 048
     Dates: start: 20090101
  3. ALBUTEROL [Concomitant]
     Route: 055
     Dates: start: 20090101
  4. DIOVAN [Concomitant]
     Dosage: 160/12.5
     Route: 055
     Dates: start: 20110701
  5. SYMBICORT [Concomitant]
     Route: 055
     Dates: start: 20090101

REACTIONS (3)
  - ANAEMIA [None]
  - DRUG DOSE OMISSION [None]
  - HAEMORRHAGE [None]
